FAERS Safety Report 8222952-4 (Version None)
Quarter: 2012Q1

REPORT INFORMATION
  Report Type: 
  Country: None (occurrence: None)
  Receive Date: 20120320
  Receipt Date: 20120315
  Transmission Date: 20120608
  Serious: Yes (Other)
  Sender: FDA-Public Use
  Company Number: PHHY2012BR023744

PATIENT
  Age: 56 Year
  Sex: Female

DRUGS (2)
  1. EXFORGE [Suspect]
     Indication: HYPERTENSION
     Dosage: 1 DF X (160/5 MG), DAILY
     Dates: start: 20120101
  2. EXFORGE [Suspect]
     Dosage: 1 DF X (80/5 MG), DAILY

REACTIONS (1)
  - BLOOD PRESSURE FLUCTUATION [None]
